FAERS Safety Report 19267474 (Version 1)
Quarter: 2021Q2

REPORT INFORMATION
  Report Type: Spontaneous
  Country: US (occurrence: US)
  Receive Date: 20210518
  Receipt Date: 20210518
  Transmission Date: 20210717
  Serious: No
  Sender: FDA-Public Use
  Company Number: US-BION-009194

PATIENT

DRUGS (2)
  1. BIONPHARMA^S IBUPROFEN CAPSULES 200 MG SOFTGELS [Suspect]
     Active Substance: IBUPROFEN
     Indication: PRODUCT USED FOR UNKNOWN INDICATION
     Dosage: STRENGTH 200 MG
  2. INFLUENZA VACCINE [Concomitant]
     Active Substance: INFLUENZA VIRUS VACCINE

REACTIONS (2)
  - Poor quality product administered [Not Recovered/Not Resolved]
  - Product odour abnormal [Unknown]
